FAERS Safety Report 16431228 (Version 4)
Quarter: 2019Q3

REPORT INFORMATION
  Report Type: Report from Study
  Country: IT (occurrence: IT)
  Receive Date: 20190614
  Receipt Date: 20190808
  Transmission Date: 20191004
  Serious: Yes (Other)
  Sender: FDA-Public Use
  Company Number: IT-PFIZER INC-2019251539

PATIENT
  Age: 87 Year
  Sex: Female

DRUGS (4)
  1. TRAMADOL/ACETAMINOPHEN [Interacting]
     Active Substance: ACETAMINOPHEN\TRAMADOL
     Dosage: UNK
  2. CELECOXIB. [Interacting]
     Active Substance: CELECOXIB
     Dosage: UNK
  3. WARFARIN SODIUM. [Interacting]
     Active Substance: WARFARIN SODIUM
     Indication: THROMBOSIS PROPHYLAXIS
     Dosage: UNK
     Route: 048
  4. PANTOPRAZOLE [Suspect]
     Active Substance: PANTOPRAZOLE
     Dosage: UNK

REACTIONS (3)
  - Haematemesis [Recovering/Resolving]
  - Melaena [Recovering/Resolving]
  - Labelled drug-drug interaction medication error [Recovering/Resolving]
